FAERS Safety Report 5219598-9 (Version None)
Quarter: 2007Q1

REPORT INFORMATION
  Report Type: 
  Country: None (occurrence: None)
  Receive Date: 20070125
  Receipt Date: 20070111
  Transmission Date: 20070707
  Serious: Yes (Hospitalization)
  Sender: FDA-Public Use
  Company Number: FI-SHR-FI-SHR-03-005162

PATIENT
  Age: 24 Year
  Sex: Female

DRUGS (20)
  1. BETASERON [Suspect]
     Indication: MULTIPLE SCLEROSIS
     Dosage: 8 MIU, EVERY 2D
     Route: 058
     Dates: start: 20020626, end: 20030321
  2. MICROLUTON [Concomitant]
     Indication: ORAL CONTRACEPTION
  3. PENICILLIN V [Concomitant]
     Dosage: 1000 MG, 3X/DAY
     Route: 048
     Dates: start: 20021217, end: 20021227
  4. ULTRACAIN D-S [Concomitant]
     Route: 058
     Dates: start: 20021016, end: 20021016
  5. IBUPROFEN [Concomitant]
     Indication: PHARYNGOLARYNGEAL PAIN
     Dosage: UNK, AS REQ'D
     Route: 048
     Dates: start: 20021218
  6. IBUPROFEN [Concomitant]
     Indication: PYREXIA
     Dates: start: 20021216, end: 20021222
  7. TEMAZEPAM [Concomitant]
     Indication: INSOMNIA
     Dosage: 10-20 MG
     Route: 048
     Dates: start: 20030304, end: 20030314
  8. OMEPRAZOLE [Concomitant]
     Dosage: 20 MG, 2X/DAY
     Route: 048
     Dates: start: 20030226
  9. PANACOD [Concomitant]
     Dosage: 1 TBS, 1X/DAY
     Route: 048
     Dates: start: 20030108
  10. DIAZEPAM [Concomitant]
     Dosage: 10 MG, 1X/DAY
     Route: 048
     Dates: start: 20030108, end: 20030108
  11. PROPOFOL [Concomitant]
     Dosage: 150 MG, 1X/DAY
     Route: 042
     Dates: start: 20030108, end: 20030108
  12. FENTANYL TRANSDERMAL SYSTEM [Concomitant]
     Dosage: .2 MG, 1X/DAY
     Route: 042
     Dates: start: 20030108, end: 20030108
  13. ROCURONIUM [Concomitant]
     Dosage: 40 MG, 1X/DAY
     Route: 042
     Dates: start: 20030108, end: 20030108
  14. TROPISETRON [Concomitant]
     Route: 042
     Dates: start: 20030108, end: 20030108
  15. TRAMADOL HCL [Concomitant]
     Dosage: 100 MG, 1X/DAY
     Route: 042
     Dates: start: 20030108, end: 20030108
  16. KETOROLAC TROMETHAMINE [Concomitant]
     Dosage: 30 MG, 2X/DAY
     Route: 042
     Dates: start: 20030108, end: 20030108
  17. OXYCODONE HCL [Concomitant]
     Dosage: 10 MG, 1X/2 WEEKS
     Route: 042
     Dates: start: 20030108, end: 20030108
  18. OXYCODONE HCL [Concomitant]
     Dosage: 8 MG, 1X/DAY
     Route: 030
     Dates: start: 20030108, end: 20030108
  19. PENICILLIN V [Concomitant]
     Indication: TOOTH INFECTION
     Dosage: 1000 MIU, 3X/DAY
     Route: 048
  20. DICLOFENAC SODIUM [Concomitant]
     Dosage: 50 MG, AS REQ'D
     Route: 048
     Dates: start: 20030218

REACTIONS (2)
  - KNEE OPERATION [None]
  - PYODERMA GANGRENOSUM [None]
